FAERS Safety Report 9647444 (Version 1)
Quarter: 2013Q4

REPORT INFORMATION
  Report Type: Spontaneous
  Country: FR (occurrence: FR)
  Receive Date: 20131028
  Receipt Date: 20131028
  Transmission Date: 20140711
  Serious: Yes (Hospitalization)
  Sender: FDA-Public Use
  Company Number: FR-ROCHE-1290723

PATIENT
  Age: 90 Year
  Sex: Female

DRUGS (2)
  1. ROCEPHINE [Suspect]
     Indication: PNEUMONIA ASPIRATION
     Route: 065
     Dates: start: 201306, end: 20130630
  2. FLAGYL [Suspect]
     Indication: PNEUMONIA ASPIRATION
     Route: 065
     Dates: start: 201306, end: 20130630

REACTIONS (1)
  - Acute generalised exanthematous pustulosis [Recovered/Resolved]
